FAERS Safety Report 21145230 (Version 1)
Quarter: 2022Q3

REPORT INFORMATION
  Report Type: Spontaneous
  Country: IT (occurrence: IT)
  Receive Date: 20220729
  Receipt Date: 20220729
  Transmission Date: 20221027
  Serious: Yes (Hospitalization, Other)
  Sender: FDA-Public Use
  Company Number: IT-MINISAL02-874829

PATIENT
  Age: 44 Year
  Sex: Female

DRUGS (2)
  1. KETOROLAC [Suspect]
     Active Substance: KETOROLAC TROMETHAMINE
     Indication: Product used for unknown indication
     Dosage: INTERA BOCCETTA A SCOPO AUTOLESIVO
     Route: 048
     Dates: start: 20220603, end: 20220603
  2. VALIUM [Suspect]
     Active Substance: DIAZEPAM
     Indication: Product used for unknown indication
     Dosage: INTERA BOCCETTA A SCOPO AUTOLESIVO
     Route: 048
     Dates: start: 20220603, end: 20220603

REACTIONS (2)
  - Drug abuse [Recovering/Resolving]
  - Loss of consciousness [Recovering/Resolving]

NARRATIVE: CASE EVENT DATE: 20220603
